FAERS Safety Report 18184868 (Version 30)
Quarter: 2021Q3

REPORT INFORMATION
  Report Type: Report from Study
  Country: CN (occurrence: CN)
  Receive Date: 20200824
  Receipt Date: 20210729
  Transmission Date: 20211014
  Serious: Yes (Death, Hospitalization, Other)
  Sender: FDA-Public Use
  Company Number: CN-ROCHE-2662582

PATIENT
  Age: 68 Year
  Sex: Male
  Weight: 56.9 kg

DRUGS (139)
  1. POLYENE PHOSPHATIDYLCHOLINE [Concomitant]
     Active Substance: PHOSPHOLIPID
     Dates: start: 20200918, end: 20200918
  2. POLYENE PHOSPHATIDYLCHOLINE [Concomitant]
     Active Substance: PHOSPHOLIPID
     Dates: start: 20210223, end: 20210223
  3. POLYENE PHOSPHATIDYLCHOLINE [Concomitant]
     Active Substance: PHOSPHOLIPID
     Dates: start: 20201222, end: 20201222
  4. FOLIC ACID. [Concomitant]
     Active Substance: FOLIC ACID
     Dates: start: 20200729, end: 20200806
  5. MEGESTROL ACETATE. [Concomitant]
     Active Substance: MEGESTROL ACETATE
     Dates: start: 20200919, end: 20200925
  6. RECOMBINANT HUMAN GRANULOCYTE COLONY?STIMULATING FACTOR INJECTION (REB [Concomitant]
     Dates: start: 20210311, end: 20210311
  7. ASPIRIN. [Concomitant]
     Active Substance: ASPIRIN
     Dates: start: 20210316, end: 20210320
  8. VITAMIN D3 [Concomitant]
     Active Substance: CHOLECALCIFEROL
     Indication: COUGH
     Dates: start: 20201015, end: 20201021
  9. RECOMBINANT HUMAN INTERLEUKIN?11 [Concomitant]
     Active Substance: OPRELVEKIN
     Dates: start: 20201231, end: 20210104
  10. PALONOSETRON HYDROCHLORIDE. [Concomitant]
     Active Substance: PALONOSETRON HYDROCHLORIDE
     Dates: start: 20201222, end: 20201222
  11. PALONOSETRON HYDROCHLORIDE. [Concomitant]
     Active Substance: PALONOSETRON HYDROCHLORIDE
     Dates: start: 20210223, end: 20210223
  12. DEXAMETHASONE SODIUM PHOSPHATE. [Concomitant]
     Active Substance: DEXAMETHASONE SODIUM PHOSPHATE
     Route: 042
     Dates: start: 20201014, end: 20201014
  13. DEXAMETHASONE SODIUM PHOSPHATE. [Concomitant]
     Active Substance: DEXAMETHASONE SODIUM PHOSPHATE
     Route: 042
     Dates: start: 20201222, end: 20201222
  14. DEXAMETHASONE SODIUM PHOSPHATE. [Concomitant]
     Active Substance: DEXAMETHASONE SODIUM PHOSPHATE
     Dates: start: 20210223, end: 20210223
  15. OMEPRAZOLE SODIUM [Concomitant]
     Active Substance: OMEPRAZOLE SODIUM
     Dates: start: 20200918, end: 20200918
  16. OMEPRAZOLE SODIUM [Concomitant]
     Active Substance: OMEPRAZOLE SODIUM
     Dates: start: 20201222, end: 20201222
  17. FOLIC ACID. [Concomitant]
     Active Substance: FOLIC ACID
     Dates: start: 20200919, end: 20200925
  18. RECOMBINANT HUMAN GRANULOCYTE COLONY?STIMULATING FACTOR INJECTION (REB [Concomitant]
     Dates: start: 20201103, end: 20201103
  19. RECOMBINANT HUMAN GRANULOCYTE COLONY?STIMULATING FACTOR INJECTION (REB [Concomitant]
     Dates: start: 20201125, end: 20201125
  20. RECOMBINANT HUMAN GRANULOCYTE COLONY?STIMULATING FACTOR INJECTION (REB [Concomitant]
     Dates: start: 20201218, end: 20201218
  21. RECOMBINANT HUMAN GRANULOCYTE COLONY?STIMULATING FACTOR INJECTION (REB [Concomitant]
     Dates: start: 20210201, end: 20210201
  22. FUROSEMIDE. [Concomitant]
     Active Substance: FUROSEMIDE
     Dates: start: 20210315, end: 20210322
  23. FUROSEMIDE. [Concomitant]
     Active Substance: FUROSEMIDE
     Dates: start: 20210316, end: 20210320
  24. RECOMBINANT HUMAN INTERLEUKIN?11 [Concomitant]
     Active Substance: OPRELVEKIN
     Dates: start: 20201116, end: 20201122
  25. PARACETAMOL AND DIHYDROCODEINE TARTRATE [Concomitant]
     Indication: COUGH
     Dates: start: 20200710, end: 20200721
  26. PARACETAMOL AND DIHYDROCODEINE TARTRATE [Concomitant]
     Dates: start: 20201208, end: 20201212
  27. METHOXYPHENAMINE HYDROCHLORIDE [Concomitant]
     Active Substance: METHOXYPHENAMINE HYDROCHLORIDE
     Indication: COUGH
     Dosage: COMPOUND METHOXYPHENAMINE HYDROCHLORIDE CAPSULES
     Dates: start: 20200710, end: 20200721
  28. VITAMIN B12 [Concomitant]
     Active Substance: CYANOCOBALAMIN
     Dates: start: 20201222, end: 20201222
  29. OMEPRAZOLE SODIUM [Concomitant]
     Active Substance: OMEPRAZOLE SODIUM
     Dates: start: 20201014, end: 20201014
  30. OMEPRAZOLE SODIUM [Concomitant]
     Active Substance: OMEPRAZOLE SODIUM
     Dates: start: 20210112, end: 20210112
  31. POLYENE PHOSPHATIDYLCHOLINE [Concomitant]
     Active Substance: PHOSPHOLIPID
     Dates: start: 20201014, end: 20201014
  32. FOLIC ACID. [Concomitant]
     Active Substance: FOLIC ACID
     Dates: start: 20210223, end: 20210301
  33. MEGESTROL ACETATE. [Concomitant]
     Active Substance: MEGESTROL ACETATE
     Dates: start: 20200828, end: 20200903
  34. MEGESTROL ACETATE. [Concomitant]
     Active Substance: MEGESTROL ACETATE
     Dates: start: 20210202, end: 20210208
  35. RECOMBINANT HUMAN GRANULOCYTE COLONY?STIMULATING FACTOR INJECTION (REB [Concomitant]
     Dates: start: 20200910, end: 20200910
  36. RECOMBINANT HUMAN GRANULOCYTE COLONY?STIMULATING FACTOR INJECTION (REB [Concomitant]
     Dates: start: 20201231, end: 20210104
  37. RECOMBINANT HUMAN GRANULOCYTE COLONY?STIMULATING FACTOR INJECTION (REB [Concomitant]
     Dates: start: 20210122, end: 20210128
  38. POLYENE PHOSPHATIDYLCHOLINE [Concomitant]
     Active Substance: PHOSPHOLIPID
     Dates: start: 20200918
  39. CLOPIDOGREL BISULFATE. [Concomitant]
     Active Substance: CLOPIDOGREL BISULFATE
     Dates: start: 20210316, end: 20210318
  40. TRIMETAZIDINE HYDROCHLORIDE [Concomitant]
     Active Substance: TRIMETAZIDINE DIHYDROCHLORIDE
     Dates: start: 20210318, end: 20210322
  41. METHOXYPHENAMINE HYDROCHLORIDE [Concomitant]
     Active Substance: METHOXYPHENAMINE HYDROCHLORIDE
     Indication: PRODUCTIVE COUGH
     Dates: start: 20200729, end: 20200730
  42. AMBROXOL HYDROCHLORIDE [Concomitant]
     Active Substance: AMBROXOL HYDROCHLORIDE
     Dates: start: 20200716, end: 20200721
  43. LIDOCAINE HYDROCHLORIDE. [Concomitant]
     Active Substance: LIDOCAINE HYDROCHLORIDE
     Indication: LOCAL ANAESTHESIA
     Dates: start: 20200728, end: 20200728
  44. DEXTROMETHORPHAN HYDROBROMIDE. [Concomitant]
     Active Substance: DEXTROMETHORPHAN HYDROBROMIDE
     Indication: COUGH
     Dosage: DEXTROMETHORPHAN HYDROBROMIDE,?CHLORPHENIRAMINE MALEATE AND?PSEUDOEPHEDRINE HYDROCHLORIDE SOLUTION
     Dates: start: 20200728, end: 20200728
  45. DEXAMETHASONE SODIUM PHOSPHATE. [Concomitant]
     Active Substance: DEXAMETHASONE SODIUM PHOSPHATE
     Dates: start: 20210112, end: 20210112
  46. OMEPRAZOLE SODIUM [Concomitant]
     Active Substance: OMEPRAZOLE SODIUM
     Dates: start: 20200730, end: 20200730
  47. METOCLOPRAMIDE. [Concomitant]
     Active Substance: METOCLOPRAMIDE
     Dates: start: 20200828, end: 20200828
  48. METOCLOPRAMIDE. [Concomitant]
     Active Substance: METOCLOPRAMIDE
     Dates: start: 20201222, end: 20201222
  49. METOCLOPRAMIDE. [Concomitant]
     Active Substance: METOCLOPRAMIDE
     Dates: start: 20210112, end: 20210112
  50. MEGESTROL ACETATE. [Concomitant]
     Active Substance: MEGESTROL ACETATE
     Dates: start: 20200720, end: 20200806
  51. RECOMBINANT HUMAN GRANULOCYTE COLONY?STIMULATING FACTOR INJECTION (REB [Concomitant]
     Indication: WHITE BLOOD CELL COUNT DECREASED
     Dates: start: 20200904, end: 20200904
  52. RECOMBINANT HUMAN GRANULOCYTE COLONY?STIMULATING FACTOR INJECTION (REB [Concomitant]
     Dates: start: 20201017, end: 20201017
  53. RECOMBINANT HUMAN GRANULOCYTE COLONY?STIMULATING FACTOR INJECTION (REB [Concomitant]
     Dates: start: 20201118, end: 20201118
  54. RECOMBINANT HUMAN GRANULOCYTE COLONY?STIMULATING FACTOR INJECTION (REB [Concomitant]
     Dates: start: 20200813, end: 20200813
  55. RECOMBINANT HUMAN GRANULOCYTE COLONY?STIMULATING FACTOR INJECTION (REB [Concomitant]
     Dates: start: 20210118, end: 20210118
  56. RECOMBINANT HUMAN INTERLEUKIN?11 [Concomitant]
     Active Substance: OPRELVEKIN
     Dates: start: 20210118, end: 20210120
  57. RECOMBINANT HUMAN INTERLEUKIN?11 [Concomitant]
     Active Substance: OPRELVEKIN
     Dates: start: 20210311, end: 20210313
  58. BEVACIZUMAB. [Suspect]
     Active Substance: BEVACIZUMAB
     Indication: NON-SMALL CELL LUNG CANCER
     Dosage: ON 30/JUL/2020, HE RECEIVED MOST RECENT DOSE OF BEVACIZUMAB (920 MG) PRIOR TO ONSET OF ANEMIA.?DATE
     Route: 042
     Dates: start: 20200730
  59. PARACETAMOL AND DIHYDROCODEINE TARTRATE [Concomitant]
     Dates: start: 20200730, end: 20200805
  60. METHOXYPHENAMINE HYDROCHLORIDE [Concomitant]
     Active Substance: METHOXYPHENAMINE HYDROCHLORIDE
     Dates: start: 20201212, end: 20201217
  61. DEXTROMETHORPHAN HYDROBROMIDE. [Concomitant]
     Active Substance: DEXTROMETHORPHAN HYDROBROMIDE
     Dates: start: 20200716, end: 20200721
  62. POLYENE PHOSPHATIDYLCHOLINE [Concomitant]
     Active Substance: PHOSPHOLIPID
     Dates: start: 20210112, end: 20210112
  63. FOLIC ACID. [Concomitant]
     Active Substance: FOLIC ACID
     Dates: start: 20200819, end: 20200825
  64. SHENG XUE XIAO BAN JIAO NANG [Concomitant]
     Indication: PLATELET COUNT INCREASED
     Dates: start: 20200819, end: 20200825
  65. RECOMBINANT HUMAN GRANULOCYTE COLONY?STIMULATING FACTOR INJECTION (REB [Concomitant]
     Dates: start: 20200922, end: 20200922
  66. RECOMBINANT HUMAN GRANULOCYTE COLONY?STIMULATING FACTOR INJECTION (REB [Concomitant]
     Dates: start: 20201112, end: 20201112
  67. RECOMBINANT HUMAN GRANULOCYTE COLONY?STIMULATING FACTOR INJECTION (REB [Concomitant]
     Dates: start: 20200806, end: 20200806
  68. RECOMBINANT HUMAN GRANULOCYTE COLONY?STIMULATING FACTOR INJECTION (REB [Concomitant]
     Dates: start: 20201225, end: 20201225
  69. RECOMBINANT HUMAN GRANULOCYTE COLONY?STIMULATING FACTOR INJECTION (REB [Concomitant]
     Dates: start: 20201231, end: 20201231
  70. RECOMBINANT HUMAN GRANULOCYTE COLONY?STIMULATING FACTOR INJECTION (REB [Concomitant]
     Dates: start: 20210108, end: 20210108
  71. RECOMBINANT HUMAN GRANULOCYTE COLONY?STIMULATING FACTOR INJECTION (REB [Concomitant]
     Dates: start: 20210122, end: 20210128
  72. FUROSEMIDE. [Concomitant]
     Active Substance: FUROSEMIDE
     Indication: POLYURIA
     Dates: start: 20210202, end: 20210208
  73. CREATINE PHOSPHATE SODIUM [Concomitant]
     Active Substance: CREATINE
     Dates: start: 20210316, end: 20210322
  74. RECOMBINANT HUMAN INTERLEUKIN?11 [Concomitant]
     Active Substance: OPRELVEKIN
     Indication: PLATELET COUNT INCREASED
     Dates: start: 20200813, end: 20200815
  75. RECOMBINANT HUMAN INTERLEUKIN?11 [Concomitant]
     Active Substance: OPRELVEKIN
     Dates: start: 20201112, end: 20201114
  76. RECOMBINANT HUMAN INTERLEUKIN?11 [Concomitant]
     Active Substance: OPRELVEKIN
     Dates: start: 20201208, end: 20201212
  77. BLINDED ATEZOLIZUMAB [Suspect]
     Active Substance: ATEZOLIZUMAB
     Indication: NON-SMALL CELL LUNG CANCER
     Dosage: ON 30/JUL/2020, HE RECEIVED MOST RECENT DOSE OF BLINDED ATEZOLIZUMAB (1200 MG) PRIOR TO ONSET OF ANE
     Route: 041
     Dates: start: 20200730
  78. CARBOPLATIN. [Suspect]
     Active Substance: CARBOPLATIN
     Indication: NON-SMALL CELL LUNG CANCER
     Dosage: ON 30/JUL/2020, HE RECEIVED MOST RECENT DOSE OF CARBOPLATIN (460 MG) PRIOR TO ONSET OF ANEMIA.?DATE
     Route: 042
     Dates: start: 20200730
  79. AMBROXOL HYDROCHLORIDE [Concomitant]
     Active Substance: AMBROXOL HYDROCHLORIDE
     Dates: start: 20200729, end: 20200730
  80. VITAMIN B12 [Concomitant]
     Active Substance: CYANOCOBALAMIN
     Dates: start: 20200918, end: 20200918
  81. PALONOSETRON HYDROCHLORIDE. [Concomitant]
     Active Substance: PALONOSETRON HYDROCHLORIDE
     Dates: start: 20200918, end: 20200918
  82. PALONOSETRON HYDROCHLORIDE. [Concomitant]
     Active Substance: PALONOSETRON HYDROCHLORIDE
     Dosage: GIVEN FOR PROPHYLAXIS
     Dates: start: 20201105, end: 20201105
  83. PALONOSETRON HYDROCHLORIDE. [Concomitant]
     Active Substance: PALONOSETRON HYDROCHLORIDE
     Dates: start: 20210112, end: 20210112
  84. DEXAMETHASONE SODIUM PHOSPHATE. [Concomitant]
     Active Substance: DEXAMETHASONE SODIUM PHOSPHATE
     Route: 042
     Dates: start: 20200828, end: 20200828
  85. OMEPRAZOLE SODIUM [Concomitant]
     Active Substance: OMEPRAZOLE SODIUM
     Dates: start: 20210102, end: 20210102
  86. METOCLOPRAMIDE. [Concomitant]
     Active Substance: METOCLOPRAMIDE
     Indication: VOMITING
     Dates: start: 20200730, end: 20200730
  87. METOCLOPRAMIDE. [Concomitant]
     Active Substance: METOCLOPRAMIDE
     Dates: start: 20201202, end: 20201202
  88. POLYENE PHOSPHATIDYLCHOLINE [Concomitant]
     Active Substance: PHOSPHOLIPID
     Dates: start: 20200828, end: 20200828
  89. POLYENE PHOSPHATIDYLCHOLINE [Concomitant]
     Active Substance: PHOSPHOLIPID
     Dates: start: 20201202, end: 20201202
  90. FOLIC ACID. [Concomitant]
     Active Substance: FOLIC ACID
     Dates: start: 20201222, end: 20201229
  91. MEGESTROL ACETATE. [Concomitant]
     Active Substance: MEGESTROL ACETATE
     Dates: start: 20210113, end: 20210119
  92. MEGESTROL ACETATE. [Concomitant]
     Active Substance: MEGESTROL ACETATE
     Dates: start: 20201130, end: 20201205
  93. RECOMBINANT HUMAN GRANULOCYTE COLONY?STIMULATING FACTOR INJECTION (REB [Concomitant]
     Dates: start: 20201010, end: 20201010
  94. RECOMBINANT HUMAN GRANULOCYTE COLONY?STIMULATING FACTOR INJECTION (REB [Concomitant]
     Dates: start: 20201020, end: 20201020
  95. RECOMBINANT HUMAN GRANULOCYTE COLONY?STIMULATING FACTOR INJECTION (REB [Concomitant]
     Dates: start: 20201130, end: 20201130
  96. RECOMBINANT HUMAN GRANULOCYTE COLONY?STIMULATING FACTOR INJECTION (REB [Concomitant]
     Dates: start: 20201203, end: 20201203
  97. RECOMBINANT HUMAN GRANULOCYTE COLONY?STIMULATING FACTOR INJECTION (REB [Concomitant]
     Dates: start: 20210115, end: 20210115
  98. CAPTOPRIL. [Concomitant]
     Active Substance: CAPTOPRIL
     Dates: start: 20210112, end: 20210112
  99. ENOXAPARIN SODIUM. [Concomitant]
     Active Substance: ENOXAPARIN SODIUM
     Dates: start: 20210316, end: 20210317
  100. COENZYME Q10 [Concomitant]
     Active Substance: DIETARY SUPPLEMENT\UBIDECARENONE
     Dates: start: 20210318, end: 20210322
  101. RIVAROXABAN [Concomitant]
     Active Substance: RIVAROXABAN
     Dates: start: 20210319, end: 20210320
  102. PEMETREXED. [Suspect]
     Active Substance: PEMETREXED
     Indication: NON-SMALL CELL LUNG CANCER
     Dosage: ON 30/JUL/2020, HE RECEIVED MOST RECENT DOSE OF PEMETREXED (800 MG) PRIOR TO ONSET OF ANEMIA.?DATE O
     Route: 042
     Dates: start: 20200730
  103. PARACETAMOL AND DIHYDROCODEINE TARTRATE [Concomitant]
     Dates: start: 20200919, end: 20200925
  104. LEVOFLOXACIN. [Concomitant]
     Active Substance: LEVOFLOXACIN
     Indication: COUGH
     Dates: start: 20200710, end: 20200715
  105. PALONOSETRON HYDROCHLORIDE. [Concomitant]
     Active Substance: PALONOSETRON HYDROCHLORIDE
     Dates: start: 20200730, end: 20200730
  106. PALONOSETRON HYDROCHLORIDE. [Concomitant]
     Active Substance: PALONOSETRON HYDROCHLORIDE
     Dates: start: 20200828, end: 20200828
  107. DEXAMETHASONE SODIUM PHOSPHATE. [Concomitant]
     Active Substance: DEXAMETHASONE SODIUM PHOSPHATE
     Route: 042
     Dates: start: 20200730, end: 20200730
  108. DEXAMETHASONE SODIUM PHOSPHATE. [Concomitant]
     Active Substance: DEXAMETHASONE SODIUM PHOSPHATE
     Route: 042
     Dates: start: 20200918, end: 20200918
  109. DEXAMETHASONE SODIUM PHOSPHATE. [Concomitant]
     Active Substance: DEXAMETHASONE SODIUM PHOSPHATE
     Route: 042
     Dates: start: 20210102, end: 20210102
  110. METOCLOPRAMIDE. [Concomitant]
     Active Substance: METOCLOPRAMIDE
     Dates: start: 20200918, end: 20200918
  111. METOCLOPRAMIDE. [Concomitant]
     Active Substance: METOCLOPRAMIDE
     Dates: start: 20210102, end: 20210102
  112. FOLIC ACID. [Concomitant]
     Active Substance: FOLIC ACID
     Dates: start: 20210202, end: 20210208
  113. RECOMBINANT HUMAN GRANULOCYTE COLONY?STIMULATING FACTOR INJECTION (REB [Concomitant]
     Dates: start: 20201027, end: 20201027
  114. RECOMBINANT HUMAN GRANULOCYTE COLONY?STIMULATING FACTOR INJECTION (REB [Concomitant]
     Dates: start: 20210118, end: 20210120
  115. IVABRADINE HYDROCHLORIDE [Concomitant]
     Active Substance: IVABRADINE HYDROCHLORIDE
     Dates: start: 20210316, end: 20210316
  116. IPRATROPIUM BROMIDE. [Concomitant]
     Active Substance: IPRATROPIUM BROMIDE
     Indication: DYSPNOEA
     Dates: start: 20210318, end: 20210322
  117. SODIUM BICARBONATE. [Concomitant]
     Active Substance: SODIUM BICARBONATE
     Dates: start: 20210315, end: 20210315
  118. PSEUDOEPHEDRINE HYDROCHLORIDE. [Concomitant]
     Active Substance: PSEUDOEPHEDRINE HYDROCHLORIDE
     Indication: COUGH
     Dates: start: 20201015, end: 20201026
  119. RECOMBINANT HUMAN INTERLEUKIN?11 [Concomitant]
     Active Substance: OPRELVEKIN
     Dates: start: 20210122, end: 20210128
  120. CALCIUM CARBONATE AND VITAMIN D3 [Concomitant]
     Active Substance: CALCIUM CARBONATE\CHOLECALCIFEROL
     Indication: COUGH
     Dates: start: 20201015, end: 20201021
  121. VITAMIN B12 [Concomitant]
     Active Substance: CYANOCOBALAMIN
     Dates: start: 20200728, end: 20200728
  122. VITAMIN B12 [Concomitant]
     Active Substance: CYANOCOBALAMIN
     Dates: start: 20200730, end: 20200730
  123. PALONOSETRON HYDROCHLORIDE. [Concomitant]
     Active Substance: PALONOSETRON HYDROCHLORIDE
     Dates: start: 20201014, end: 20201014
  124. FOLIC ACID. [Concomitant]
     Active Substance: FOLIC ACID
     Dates: start: 20200828, end: 20200903
  125. FOLIC ACID. [Concomitant]
     Active Substance: FOLIC ACID
     Dates: start: 20210113, end: 20210119
  126. ERYTHROPOIETIN [Concomitant]
     Active Substance: ERYTHROPOIETIN
     Dates: start: 20200806
  127. MEGESTROL ACETATE. [Concomitant]
     Active Substance: MEGESTROL ACETATE
     Dates: start: 20200819, end: 20200825
  128. CALCIUM GLUCONATE. [Concomitant]
     Active Substance: CALCIUM GLUCONATE
     Dates: start: 20201014, end: 20201014
  129. RECOMBINANT HUMAN GRANULOCYTE COLONY?STIMULATING FACTOR INJECTION (REB [Concomitant]
     Indication: WHITE BLOOD CELL COUNT INCREASED
     Dates: start: 20200817, end: 20200817
  130. MONTELUKAST SODIUM. [Concomitant]
     Active Substance: MONTELUKAST SODIUM
     Indication: DYSPNOEA
     Dates: start: 20210318, end: 20210322
  131. AMIODARONE HYDROCHLORIDE. [Concomitant]
     Active Substance: AMIODARONE HYDROCHLORIDE
     Dates: start: 20210316, end: 20210316
  132. ISOSORBIDE MONONITRATE. [Concomitant]
     Active Substance: ISOSORBIDE MONONITRATE
     Dates: start: 20210316, end: 20210322
  133. MONTMORILLONITE [Concomitant]
     Active Substance: MONTMORILLONITE
     Indication: DIARRHOEA
     Dates: start: 20210311, end: 20210311
  134. RECOMBINANT HUMAN INTERLEUKIN?11 [Concomitant]
     Active Substance: OPRELVEKIN
     Dates: start: 20210226, end: 20210307
  135. EUCALYPTOL, LIMONENE AND PINENE ENTERIC SOFT CAPSULES [Concomitant]
     Dates: start: 20200728, end: 20200728
  136. OMEPRAZOLE SODIUM [Concomitant]
     Active Substance: OMEPRAZOLE SODIUM
     Dates: start: 20200828, end: 20200828
  137. OMEPRAZOLE SODIUM [Concomitant]
     Active Substance: OMEPRAZOLE SODIUM
     Dates: start: 20210223, end: 20210223
  138. METOCLOPRAMIDE. [Concomitant]
     Active Substance: METOCLOPRAMIDE
     Dates: start: 20201014, end: 20201014
  139. POLYENE PHOSPHATIDYLCHOLINE [Concomitant]
     Active Substance: PHOSPHOLIPID
     Dates: start: 20200730, end: 20200730

REACTIONS (2)
  - Neutrophil count decreased [Recovered/Resolved]
  - Anaemia [Not Recovered/Not Resolved]

NARRATIVE: CASE EVENT DATE: 20200806
